FAERS Safety Report 12089791 (Version 1)
Quarter: 2016Q1

REPORT INFORMATION
  Report Type: Spontaneous
  Country: US (occurrence: US)
  Receive Date: 20160218
  Receipt Date: 20160218
  Transmission Date: 20160526
  Serious: Yes (Other)
  Sender: FDA-Public Use
  Company Number: US-FERRINGPH-2016FE00677

PATIENT

DRUGS (10)
  1. SINGULAIR [Concomitant]
     Active Substance: MONTELUKAST SODIUM
     Dosage: 10 MG, UNK
  2. PROSTEON [Concomitant]
     Active Substance: MINERALS
  3. OXYTROL [Concomitant]
     Active Substance: OXYBUTYNIN
  4. ALEVE [Concomitant]
     Active Substance: NAPROXEN SODIUM
  5. LISINOPRIL. [Concomitant]
     Active Substance: LISINOPRIL
     Indication: HYPERTENSION
     Dosage: 5 MG, UNK
  6. LIPOFLAVONOID [Concomitant]
     Active Substance: UNSPECIFIED INGREDIENT
  7. ALLEGRA [Concomitant]
     Active Substance: FEXOFENADINE HYDROCHLORIDE
     Dosage: 180 MG, UNK
  8. XGEVA [Concomitant]
     Active Substance: DENOSUMAB
  9. FIRMAGON [Suspect]
     Active Substance: DEGARELIX ACETATE
     Indication: PROSTATE CANCER
     Dosage: TWO INJECTIONS IN STOMACH
     Dates: start: 20160122
  10. FIRMAGON [Suspect]
     Active Substance: DEGARELIX ACETATE
     Indication: PROSTATIC SPECIFIC ANTIGEN INCREASED

REACTIONS (2)
  - Glaucoma [Not Recovered/Not Resolved]
  - Hypertension [Not Recovered/Not Resolved]

NARRATIVE: CASE EVENT DATE: 20160123
